FAERS Safety Report 4498016-2 (Version None)
Quarter: 2004Q4

REPORT INFORMATION
  Report Type: 
  Country: None (occurrence: None)
  Receive Date: 20041109
  Receipt Date: 20041109
  Transmission Date: 20050328
  Serious: Yes (Hospitalization)
  Sender: FDA-Public Use
  Company Number: None

PATIENT
  Sex: Male
  Weight: 85.5 kg

DRUGS (7)
  1. CISPLATIN [Suspect]
     Indication: SMALL CELL LUNG CANCER STAGE UNSPECIFIED
     Dosage: 129 MG,129 MG,129 MG
     Dates: start: 20040907
  2. CISPLATIN [Suspect]
     Indication: SMALL CELL LUNG CANCER STAGE UNSPECIFIED
     Dosage: 129 MG,129 MG,129 MG
     Dates: start: 20040929
  3. CISPLATIN [Suspect]
     Indication: SMALL CELL LUNG CANCER STAGE UNSPECIFIED
     Dosage: 129 MG,129 MG,129 MG
     Dates: start: 20041026
  4. ETOPOSIDE [Suspect]
     Dosage: 258 MG, 259 MG, 252 MG
     Dates: start: 20040907
  5. ETOPOSIDE [Suspect]
     Dosage: 258 MG, 259 MG, 252 MG
     Dates: start: 20040929
  6. ETOPOSIDE [Suspect]
     Dosage: 258 MG, 259 MG, 252 MG
     Dates: start: 20041026
  7. RADIATION THERAPY [Concomitant]

REACTIONS (6)
  - ANOREXIA [None]
  - ASTHENIA [None]
  - CLOSTRIDIAL INFECTION [None]
  - DEHYDRATION [None]
  - FAECAL INCONTINENCE [None]
  - MARKEDLY REDUCED DIETARY INTAKE [None]
